FAERS Safety Report 5075023-2 (Version None)
Quarter: 2006Q3

REPORT INFORMATION
  Report Type: 
  Country: None (occurrence: None)
  Receive Date: 20060809
  Receipt Date: 20060725
  Transmission Date: 20061208
  Serious: Yes (Hospitalization)
  Sender: FDA-Public Use
  Company Number: US-AMGEN-US187812

PATIENT
  Sex: Female

DRUGS (2)
  1. ENBREL [Suspect]
     Indication: RHEUMATOID ARTHRITIS
     Route: 058
     Dates: start: 20050805
  2. METHOTREXATE [Concomitant]
     Dates: start: 19960501

REACTIONS (3)
  - ARTHRITIS [None]
  - CLOSTRIDIAL INFECTION [None]
  - URINARY TRACT INFECTION [None]
